FAERS Safety Report 19892362 (Version 2)
Quarter: 2021Q4

REPORT INFORMATION
  Report Type: Report from Study
  Country: US (occurrence: US)
  Receive Date: 20210928
  Receipt Date: 20211013
  Transmission Date: 20220303
  Serious: Yes (Life-Threatening, Other)
  Sender: FDA-Public Use
  Company Number: US-CHI-000065

PATIENT
  Age: 66 Year
  Sex: Female

DRUGS (2)
  1. FULVESTRANT [Suspect]
     Active Substance: FULVESTRANT
  2. ALPELISIB [Suspect]
     Active Substance: ALPELISIB

REACTIONS (2)
  - Tumour lysis syndrome [Recovered/Resolved]
  - Hallucination [Recovered/Resolved]
